FAERS Safety Report 4627792-0 (Version None)
Quarter: 2005Q2

REPORT INFORMATION
  Report Type: 
  Country: None (occurrence: None)
  Receive Date: 20050406
  Receipt Date: 20050329
  Transmission Date: 20051028
  Serious: Yes (Hospitalization, Disabling, Other)
  Sender: FDA-Public Use
  Company Number: US-BRISTOL-MYERS SQUIBB COMPANY-12915591

PATIENT
  Age: 50 Year
  Sex: Male

DRUGS (1)
  1. SERZONE [Suspect]
     Dates: start: 20000120, end: 20000601

REACTIONS (9)
  - DEAFNESS [None]
  - DIARRHOEA [None]
  - EYE DISORDER [None]
  - GOUT [None]
  - HEPATIC FAILURE [None]
  - LIVER TRANSPLANT [None]
  - MYOCARDIAL INFARCTION [None]
  - NEUROPATHY PERIPHERAL [None]
  - TOOTH LOSS [None]
